FAERS Safety Report 17984094 (Version 1)
Quarter: 2020Q3

REPORT INFORMATION
  Report Type: Report from Study
  Country: None (occurrence: US)
  Receive Date: 20200706
  Receipt Date: 20200706
  Transmission Date: 20201103
  Serious: Yes (Other)
  Sender: FDA-Public Use
  Company Number: US-ABBVIE-20K-163-3469519-00

PATIENT
  Age: 55 Year
  Sex: Male
  Weight: 104.42 kg

DRUGS (17)
  1. HUMIRA [Suspect]
     Active Substance: ADALIMUMAB
     Indication: RHEUMATOID ARTHRITIS
  2. FENOFIBRATE. [Concomitant]
     Active Substance: FENOFIBRATE
     Indication: BLOOD TRIGLYCERIDES ABNORMAL
  3. LISINOPRIL. [Concomitant]
     Active Substance: LISINOPRIL
     Indication: CARDIAC DISORDER
  4. METOPROLOL. [Concomitant]
     Active Substance: METOPROLOL
     Indication: CARDIAC DISORDER
  5. KLOR?CON [Concomitant]
     Active Substance: POTASSIUM CHLORIDE
     Indication: BLOOD POTASSIUM
  6. HUMIRA [Suspect]
     Active Substance: ADALIMUMAB
     Indication: PSORIASIS
  7. HUMIRA [Suspect]
     Active Substance: ADALIMUMAB
     Indication: PSORIATIC ARTHROPATHY
  8. BUPROPION. [Concomitant]
     Active Substance: BUPROPION
     Indication: DEPRESSION
  9. ZETIA [Concomitant]
     Active Substance: EZETIMIBE
     Indication: BLOOD CHOLESTEROL
  10. ASPIRIN. [Concomitant]
     Active Substance: ASPIRIN
     Indication: CARDIAC DISORDER
  11. DICLOFENAC SODIUM. [Concomitant]
     Active Substance: DICLOFENAC SODIUM
     Indication: ARTHRITIS
  12. AMLODIPINE [Concomitant]
     Active Substance: AMLODIPINE BESYLATE
     Indication: CARDIAC DISORDER
  13. TAMSULOSIN [Concomitant]
     Active Substance: TAMSULOSIN
     Indication: URINARY TRACT DISORDER
  14. RIBOFLAVIN [Concomitant]
     Active Substance: RIBOFLAVIN
     Indication: VITAMIN SUPPLEMENTATION
  15. HUMIRA [Suspect]
     Active Substance: ADALIMUMAB
     Indication: AUTOIMMUNE DISORDER
     Route: 058
     Dates: start: 2005, end: 2007
  16. COQ 10 [Concomitant]
     Active Substance: UBIDECARENONE
     Indication: NUTRITIONAL SUPPLEMENTATION
  17. COENZYME B12 [Concomitant]
     Indication: ENZYME SUPPLEMENTATION

REACTIONS (8)
  - Knee arthroplasty [Unknown]
  - Vertigo [Recovered/Resolved]
  - Cholecystectomy [Recovered/Resolved]
  - Coronary arterial stent insertion [Unknown]
  - Large intestine polyp [Unknown]
  - Ear disorder [Recovered/Resolved]
  - Deafness [Not Recovered/Not Resolved]
  - Large intestine polyp [Unknown]

NARRATIVE: CASE EVENT DATE: 200607
